FAERS Safety Report 5758434-9 (Version None)
Quarter: 2008Q2

REPORT INFORMATION
  Report Type: 
  Country: None (occurrence: None)
  Receive Date: 20080604
  Receipt Date: 20080604
  Transmission Date: 20081010
  Serious: Yes (Other)
  Sender: FDA-Public Use
  Company Number: A0731096A

PATIENT
  Age: 63 Year
  Sex: Female

DRUGS (1)
  1. COMMIT [Suspect]
     Indication: SMOKING CESSATION THERAPY
     Dosage: 4MG UNKNOWN
     Route: 002

REACTIONS (3)
  - DYSPEPSIA [None]
  - GASTRIC ULCER [None]
  - INTENTIONAL DRUG MISUSE [None]
